FAERS Safety Report 13277818 (Version 1)
Quarter: 2017Q1

REPORT INFORMATION
  Report Type: Spontaneous
  Country: BR (occurrence: BR)
  Receive Date: 20170228
  Receipt Date: 20170228
  Transmission Date: 20170428
  Serious: Yes (Life-Threatening, Other)
  Sender: FDA-Public Use
  Company Number: BR-BAUSCH-BL-2017-004995

PATIENT
  Age: 77 Year
  Sex: Male

DRUGS (1)
  1. FLUOROURACIL. [Suspect]
     Active Substance: FLUOROURACIL
     Indication: ACINAR CELL CARCINOMA OF PANCREAS
     Dosage: EVERY CYCLE
     Route: 065

REACTIONS (1)
  - Drug ineffective [Unknown]
